FAERS Safety Report 8329756-2 (Version None)
Quarter: 2012Q2

REPORT INFORMATION
  Report Type: 
  Country: None (occurrence: None)
  Receive Date: 20120502
  Receipt Date: 20091019
  Transmission Date: 20120825
  Serious: No
  Sender: FDA-Public Use
  Company Number: US-TEVA-2009011571

PATIENT
  Sex: Female
  Weight: 81.72 kg

DRUGS (2)
  1. NUVIGIL [Suspect]
     Indication: MULTIPLE SCLEROSIS
     Dosage: 150 MILLIGRAM;
     Route: 048
     Dates: start: 20090701
  2. AVONEX [Concomitant]

REACTIONS (3)
  - HEART RATE INCREASED [None]
  - TENSION [None]
  - NERVOUSNESS [None]
